FAERS Safety Report 7496398-0 (Version None)
Quarter: 2011Q2

REPORT INFORMATION
  Report Type: 
  Country: None (occurrence: None)
  Receive Date: 20110513
  Receipt Date: 20110417
  Transmission Date: 20111010
  Serious: Yes (Life-Threatening)
  Sender: FDA-Public Use
  Company Number: 54973

PATIENT
  Age: 77 Year
  Sex: Male
  Weight: 89.8122 kg

DRUGS (7)
  1. SPIRONOLACTONE [Concomitant]
  2. DAILY ASA [Concomitant]
  3. SYNTHROID [Concomitant]
  4. QUININE SULFATE [Suspect]
     Indication: MUSCLE SPASMS
     Dosage: 2 TABLETS, TWICE
  5. NAPROXEN (ALEVE) [Suspect]
     Dosage: 2 TABLETS
  6. LASIX [Concomitant]
  7. CHEMOTHERAPY [Concomitant]

REACTIONS (7)
  - PRESYNCOPE [None]
  - CONTRAINDICATION TO MEDICAL TREATMENT [None]
  - PALLOR [None]
  - BLOOD PRESSURE DECREASED [None]
  - RENAL IMPAIRMENT [None]
  - VENTRICULAR TACHYCARDIA [None]
  - ELECTROCARDIOGRAM QT PROLONGED [None]
